FAERS Safety Report 19414783 (Version 2)
Quarter: 2021Q2

REPORT INFORMATION
  Report Type: Spontaneous
  Country: ES (occurrence: ES)
  Receive Date: 20210615
  Receipt Date: 20210617
  Transmission Date: 20210717
  Serious: Yes (Life-Threatening, Hospitalization, Other)
  Sender: FDA-Public Use
  Company Number: ES-TEVA-2021-ES-1922468

PATIENT
  Age: 69 Year
  Sex: Male

DRUGS (3)
  1. PEMBROLIZUMAB. [Suspect]
     Active Substance: PEMBROLIZUMAB
     Indication: NON-SMALL CELL LUNG CANCER METASTATIC
     Dosage: SECOND?LINE THERAPY
     Route: 065
     Dates: start: 201808
  2. CISPLATIN. [Suspect]
     Active Substance: CISPLATIN
     Indication: NON-SMALL CELL LUNG CANCER METASTATIC
     Dosage: FIRST?LINE THERAPY
     Route: 065
     Dates: start: 201803, end: 201808
  3. PEMETREXED. [Suspect]
     Active Substance: PEMETREXED
     Indication: NON-SMALL CELL LUNG CANCER METASTATIC
     Dosage: FIRST?LINE THERAPY
     Route: 065
     Dates: start: 201803, end: 201808

REACTIONS (8)
  - Cardiac failure acute [Unknown]
  - Myasthenic syndrome [Unknown]
  - Autoimmune hepatitis [Recovering/Resolving]
  - Left ventricular dysfunction [Recovering/Resolving]
  - Ventricular dyssynchrony [Recovering/Resolving]
  - Therapy non-responder [Unknown]
  - Autoimmune myocarditis [Recovering/Resolving]
  - Haemodynamic instability [Recovered/Resolved]

NARRATIVE: CASE EVENT DATE: 2018
